FAERS Safety Report 16678762 (Version 1)
Quarter: 2019Q3

REPORT INFORMATION
  Report Type: Report from Study
  Country: US (occurrence: US)
  Receive Date: 20190807
  Receipt Date: 20190807
  Transmission Date: 20191004
  Serious: Yes (Other)
  Sender: FDA-Public Use
  Company Number: US-UPSHER-SMITH LABORATORIES, LLC-2019USL00594

PATIENT
  Sex: Male
  Weight: 6.35 kg

DRUGS (3)
  1. VIGADRONE [Suspect]
     Active Substance: VIGABATRIN
     Dosage: 320 MG, 2X/DAY
     Dates: start: 20190711
  2. ACTH [Concomitant]
     Active Substance: CORTICOTROPIN
     Indication: MUSCLE SPASMS
  3. VIGADRONE [Suspect]
     Active Substance: VIGABATRIN
     Indication: MUSCLE SPASMS
     Dosage: 160 MG, 2X/DAY
     Dates: start: 20190708, end: 20190710

REACTIONS (6)
  - Poor sucking reflex [Not Recovered/Not Resolved]
  - Fatigue [Not Recovered/Not Resolved]
  - Mood altered [Not Recovered/Not Resolved]
  - Sleep disorder [Not Recovered/Not Resolved]
  - Eye movement disorder [Not Recovered/Not Resolved]
  - Initial insomnia [Not Recovered/Not Resolved]

NARRATIVE: CASE EVENT DATE: 201907
